FAERS Safety Report 18106771 (Version 1)
Quarter: 2020Q3

REPORT INFORMATION
  Report Type: Spontaneous
  Country: US (occurrence: US)
  Receive Date: 20200803
  Receipt Date: 20200803
  Transmission Date: 20201103
  Serious: Yes (Other)
  Sender: FDA-Public Use
  Company Number: None

PATIENT
  Age: 78 Year
  Sex: Female

DRUGS (13)
  1. PROLIA [Suspect]
     Active Substance: DENOSUMAB
     Indication: OSTEOPOROSIS
     Dosage: ?          OTHER DOSE:1 SYR;OTHER FREQUENCY:Q6M;?
     Route: 058
     Dates: start: 20140829
  2. CALCIUM [Suspect]
     Active Substance: CALCIUM
  3. COD LIVER OIL [Suspect]
     Active Substance: COD LIVER OIL
  4. FLAXSEED [Suspect]
     Active Substance: FLAX SEED
  5. ATORVASTATIN [Suspect]
     Active Substance: ATORVASTATIN
  6. TRIAMT/HCTZ [Suspect]
     Active Substance: HYDROCHLOROTHIAZIDE\TRIAMTERENE
  7. HCTZ/TRIAMT [Suspect]
     Active Substance: HYDROCHLOROTHIAZIDE\TRIAMTERENE
  8. LISINOPRIL. [Suspect]
     Active Substance: LISINOPRIL
  9. ASPIRIN. [Suspect]
     Active Substance: ASPIRIN
  10. RESTASIS [Suspect]
     Active Substance: CYCLOSPORINE
  11. VITAMIN D [Suspect]
     Active Substance: VITAMIN D NOS
  12. VITAMIN B12 [Suspect]
     Active Substance: CYANOCOBALAMIN
  13. LETROZOLE. [Suspect]
     Active Substance: LETROZOLE

REACTIONS (1)
  - Breast cancer [None]

NARRATIVE: CASE EVENT DATE: 20200705
